FAERS Safety Report 8529440-6 (Version None)
Quarter: 2012Q3

REPORT INFORMATION
  Report Type: 
  Country: None (occurrence: None)
  Receive Date: 20120723
  Receipt Date: 20120713
  Transmission Date: 20120928
  Serious: Yes (Hospitalization)
  Sender: FDA-Public Use
  Company Number: US-BAYER-2012-015874

PATIENT
  Age: 47 Year
  Sex: Female
  Weight: 70.295 kg

DRUGS (13)
  1. YASMIN [Suspect]
     Indication: ACNE
     Dosage: UNK
     Dates: start: 20080501, end: 20090501
  2. PERCOCET [Concomitant]
     Dosage: 5-325 MG / EVERY 3 HOURS AS NEEDED
     Route: 048
     Dates: start: 20090302, end: 20090303
  3. YASMIN [Suspect]
  4. MARCAINE HYDROCHLORIDE W/ EPINEPHRINE [Concomitant]
     Indication: HYSTERECTOMY
     Dosage: 50 ML VIAL - 1 VIAL
     Dates: start: 20090302
  5. SUBLIMAZE PRESERVATIVE FREE [Concomitant]
     Dosage: 25-50 MCG /EVERY 3 MINUTES AS NEEDED TO A MAXIMUM TOTAL DOSE OF 150 MCG
     Route: 042
     Dates: start: 20090302
  6. TORADOL [Concomitant]
     Dosage: 30 MG, UNK
     Route: 042
     Dates: start: 20090302, end: 20090303
  7. DROSPIRENONE AND ETHINYL ESTRADIOL [Suspect]
     Indication: ACNE
     Dosage: UNK
     Dates: start: 20080501, end: 20090501
  8. ADVAIR DISKUS 100/50 [Concomitant]
     Dosage: 100 MCG-50 MCG, TAKES SOMETIMES
     Route: 045
  9. ZOFRAN [Concomitant]
     Dosage: 4 MG, INTRAVENOUS PUSH OVER 2 - 5 MINUTES
     Route: 042
     Dates: start: 20120302, end: 20120303
  10. DROSPIRENONE AND ETHINYL ESTRADIOL [Suspect]
     Indication: PREMENSTRUAL SYNDROME
  11. DROSPIRENONE AND ETHINYL ESTRADIOL [Suspect]
  12. YASMIN [Suspect]
     Indication: PREMENSTRUAL SYNDROME
  13. REGLAN [Concomitant]
     Dosage: 10 MG / EVERY 6 HOURS AS NEEDED
     Route: 042
     Dates: start: 20090302

REACTIONS (6)
  - PAIN [None]
  - MENTAL DISORDER [None]
  - GALLBLADDER DISORDER [None]
  - CHOLECYSTITIS CHRONIC [None]
  - INJURY [None]
  - DEPRESSION [None]
